FAERS Safety Report 10897737 (Version 2)
Quarter: 2015Q1

REPORT INFORMATION
  Report Type: Spontaneous
  Country: FR (occurrence: FR)
  Receive Date: 20150309
  Receipt Date: 20150319
  Transmission Date: 20150721
  Serious: Yes (Hospitalization)
  Sender: FDA-Public Use
  Company Number: FR-RECKITT BENCKISER PHARMACEUTICAL, INC-RB-076636-2015

PATIENT
  Age: 37 Year
  Sex: Male

DRUGS (1)
  1. SUBUTEX [Suspect]
     Active Substance: BUPRENORPHINE HYDROCHLORIDE
     Indication: DRUG DEPENDENCE
     Dosage: UNKNOWN DOSE FOR ONE DAY
     Route: 051
     Dates: start: 20140626, end: 20140626

REACTIONS (7)
  - Oedema peripheral [Recovered/Resolved]
  - Dyspnoea [Recovered/Resolved]
  - Intentional product misuse [Recovered/Resolved]
  - Injection site oedema [Recovered/Resolved]
  - Erysipelas [Recovered/Resolved]
  - Rales [Recovered/Resolved]
  - Cough [Recovered/Resolved]

NARRATIVE: CASE EVENT DATE: 20140626
